FAERS Safety Report 6298098-1 (Version None)
Quarter: 2009Q3

REPORT INFORMATION
  Report Type: 
  Country: None (occurrence: None)
  Receive Date: 20090804
  Receipt Date: 20090804
  Transmission Date: 20100115
  Serious: Yes (Death)
  Sender: FDA-Public Use
  Company Number: None

PATIENT
  Sex: Male
  Weight: 127.0072 kg

DRUGS (1)
  1. VITAMIN K 10MG/ML [Suspect]
     Indication: INTERNATIONAL NORMALISED RATIO INCREASED
     Dates: start: 20090803, end: 20090803

REACTIONS (2)
  - ANGIOEDEMA [None]
  - RESPIRATORY FAILURE [None]
